FAERS Safety Report 22105621 (Version 1)
Quarter: 2023Q1

REPORT INFORMATION
  Report Type: Spontaneous
  Country: US (occurrence: US)
  Receive Date: 20230317
  Receipt Date: 20230317
  Transmission Date: 20230418
  Serious: No
  Sender: FDA-Public Use
  Company Number: US-BIOVITRUM-2023-US-02362

PATIENT
  Age: 80 Year
  Sex: Male

DRUGS (5)
  1. DOPTELET [Suspect]
     Active Substance: AVATROMBOPAG MALEATE
     Indication: Immune thrombocytopenia
  2. VALTREX [Concomitant]
     Active Substance: VALACYCLOVIR HYDROCHLORIDE
  3. GABAPENTIN [Concomitant]
     Active Substance: GABAPENTIN
  4. ENALAPRIL [Concomitant]
     Active Substance: ENALAPRIL
  5. VALIUM [Concomitant]
     Active Substance: DIAZEPAM

REACTIONS (1)
  - Platelet count abnormal [Unknown]
